FAERS Safety Report 19046629 (Version 1)
Quarter: 2021Q1

REPORT INFORMATION
  Report Type: Spontaneous
  Country: US (occurrence: US)
  Receive Date: 20210322
  Receipt Date: 20210322
  Transmission Date: 20210420
  Serious: Yes (Other)
  Sender: FDA-Public Use
  Company Number: US-JNJFOC-20210332433

PATIENT
  Age: 79 Year
  Sex: Male

DRUGS (1)
  1. BALVERSA [Suspect]
     Active Substance: ERDAFITINIB
     Indication: PRODUCT USED FOR UNKNOWN INDICATION
     Dosage: 4MG TAB TAKE 2 TABLETS BY MOUTH ONCE DAILY
     Route: 048
     Dates: start: 20210129

REACTIONS (1)
  - Retinal detachment [Unknown]
